FAERS Safety Report 5175377-2 (Version None)
Quarter: 2006Q4

REPORT INFORMATION
  Report Type: 
  Country: None (occurrence: None)
  Receive Date: 20061203
  Receipt Date: 20061203
  Transmission Date: 20070319
  Serious: No
  Sender: FDA-Public Use
  Company Number: None

PATIENT

DRUGS (2)
  1. CYTOTEC [Suspect]
     Dosage: TAB
  2. CYCLOPHOSPHAMIDE [Suspect]
     Dosage: TAB.

REACTIONS (4)
  - CONFUSIONAL STATE [None]
  - DRUG DISPENSING ERROR [None]
  - MEDICATION ERROR [None]
  - OVERDOSE [None]
